FAERS Safety Report 5165802-5 (Version None)
Quarter: 2006Q4

REPORT INFORMATION
  Report Type: 
  Country: None (occurrence: None)
  Receive Date: 20061128
  Receipt Date: 20061113
  Transmission Date: 20070319
  Serious: Yes (Life-Threatening)
  Sender: FDA-Public Use
  Company Number: ES-2006-033686

PATIENT
  Age: 93 Year
  Sex: Female

DRUGS (2)
  1. ULTRAVIST 300 [Suspect]
     Indication: COMPUTERISED TOMOGRAM ABDOMEN
     Dosage: 80 ML, 1 DOSE, INTRAVENOUS
     Route: 042
     Dates: start: 20061103, end: 20061103
  2. SEREVENT [Concomitant]

REACTIONS (10)
  - ASTHENIA [None]
  - BRONCHOSPASM [None]
  - CIRCULATORY COLLAPSE [None]
  - CYANOSIS [None]
  - DEPRESSED LEVEL OF CONSCIOUSNESS [None]
  - DYSPNOEA [None]
  - EYELID OEDEMA [None]
  - HYPOTENSION [None]
  - MALAISE [None]
  - SNEEZING [None]
